FAERS Safety Report 6999517-5 (Version None)
Quarter: 2010Q3

REPORT INFORMATION
  Report Type: 
  Country: None (occurrence: None)
  Receive Date: 20100920
  Receipt Date: 20070702
  Transmission Date: 20110219
  Serious: Yes (Other)
  Sender: FDA-Public Use
  Company Number: US-ASTRAZENECA-2006UW23901

PATIENT
  Sex: Female
  Weight: 77.7 kg

DRUGS (3)
  1. SEROQUEL [Suspect]
     Indication: MENTAL DISORDER
     Dosage: 100 - 200 MG
     Route: 048
     Dates: start: 20010801
  2. ZYPREXA [Concomitant]
     Dates: start: 20000128
  3. LITHIUM CARBONATE [Concomitant]
     Indication: DEPRESSION
     Dosage: 300 MG, TWO A DAY
     Dates: start: 20000128

REACTIONS (2)
  - DIABETIC COMA [None]
  - DIABETIC KETOACIDOSIS [None]
